FAERS Safety Report 11075079 (Version 1)
Quarter: 2015Q2

REPORT INFORMATION
  Report Type: Spontaneous
  Country: US (occurrence: US)
  Receive Date: 20150429
  Receipt Date: 20150429
  Transmission Date: 20150821
  Serious: Yes (Other)
  Sender: FDA-Public Use
  Company Number: US-PFIZER INC-2015141524

PATIENT
  Age: 83 Year
  Sex: Female

DRUGS (1)
  1. CELECOXIB. [Suspect]
     Active Substance: CELECOXIB
     Dosage: UNK, 2 TO 3 TIMES PER WEEK

REACTIONS (5)
  - Abdominal discomfort [Unknown]
  - Intentional product misuse [Unknown]
  - Scoliosis [Unknown]
  - Drug ineffective [Unknown]
  - Gait disturbance [Unknown]
